FAERS Safety Report 7739188-3 (Version None)
Quarter: 2011Q3

REPORT INFORMATION
  Report Type: 
  Country: None (occurrence: None)
  Receive Date: 20110906
  Receipt Date: 20110829
  Transmission Date: 20111222
  Serious: Yes (Other)
  Sender: FDA-Public Use
  Company Number: ACO_26427_2011

PATIENT
  Age: 51 Year
  Sex: Male

DRUGS (1)
  1. AMPYRA [Suspect]
     Indication: GAIT DISTURBANCE
     Dosage: 10 MG, Q 12 HRS
     Dates: start: 20110601, end: 20110601

REACTIONS (4)
  - CONVULSION [None]
  - TUNNEL VISION [None]
  - FEELING ABNORMAL [None]
  - DRUG HYPERSENSITIVITY [None]
